FAERS Safety Report 8098987-1 (Version None)
Quarter: 2012Q1

REPORT INFORMATION
  Report Type: 
  Country: None (occurrence: None)
  Receive Date: 20120129
  Receipt Date: 20111024
  Transmission Date: 20120608
  Serious: No
  Sender: FDA-Public Use
  Company Number: US-ABBOTT-11P-163-0867873-00

PATIENT
  Age: 56 Year
  Sex: Female

DRUGS (6)
  1. LEXAPRO [Concomitant]
     Indication: DEPRESSION
     Dosage: 1/2 TABLET DAILY, STARTED ONE WEEK AFTER STARTING HUMIRA
  2. IMURAN [Concomitant]
     Indication: PRODUCT USED FOR UNKNOWN INDICATION
  3. HUMIRA [Suspect]
     Indication: CROHN'S DISEASE
     Dates: start: 20110530, end: 20110925
  4. LEXAPRO [Concomitant]
     Indication: ANXIETY
  5. PREMARIN [Concomitant]
     Indication: VAGINAL DISORDER
  6. OMEPRAZOLE [Concomitant]
     Indication: GASTROOESOPHAGEAL REFLUX DISEASE

REACTIONS (3)
  - FATIGUE [None]
  - PYREXIA [None]
  - INFLUENZA [None]
